FAERS Safety Report 5802453-0 (Version None)
Quarter: 2008Q3

REPORT INFORMATION
  Report Type: 
  Country: None (occurrence: None)
  Receive Date: 20080708
  Receipt Date: 20080628
  Transmission Date: 20090109
  Serious: Yes (Other)
  Sender: FDA-Public Use
  Company Number: US-BAYER-200812648BCC

PATIENT
  Age: 23 Year
  Sex: Female
  Weight: 50 kg

DRUGS (2)
  1. MIDOL MENSTRUAL COMPLETE MAXIMUM STRENGTH CAPLETS [Suspect]
     Indication: DYSMENORRHOEA
     Dosage: AS USED: 4 DF
     Route: 048
     Dates: start: 20080628
  2. MIDOL MENSTRUAL COMPLETE MAXIMUM STRENGTH CAPLETS [Suspect]
     Dosage: AS USED: 2 DF
     Route: 048

REACTIONS (2)
  - INTRACRANIAL ANEURYSM [None]
  - NERVOUSNESS [None]
